FAERS Safety Report 4869352-2 (Version None)
Quarter: 2005Q4

REPORT INFORMATION
  Report Type: 
  Country: None (occurrence: None)
  Receive Date: 20051230
  Receipt Date: 20051111
  Transmission Date: 20060501
  Serious: Yes (Life-Threatening, Hospitalization, Disabling, Other)
  Sender: FDA-Public Use
  Company Number: DE-NOVOPROD-248496

PATIENT
  Age: 4 Year
  Sex: Male
  Weight: 18 kg

DRUGS (2)
  1. NOVOLOG [Suspect]
     Indication: DIABETES MELLITUS INSULIN-DEPENDENT
     Dosage: 7 IU, QD
     Route: 058
     Dates: start: 20041201, end: 20050801
  2. PROTAPHANE PENFILL [Suspect]
     Indication: DIABETES MELLITUS INSULIN-DEPENDENT
     Dosage: 11 IU, QD
     Route: 058
     Dates: start: 20030501

REACTIONS (2)
  - ASTROCYTOMA [None]
  - ASTROCYTOMA, LOW GRADE [None]
